FAERS Safety Report 5741526-8 (Version None)
Quarter: 2008Q2

REPORT INFORMATION
  Report Type: 
  Country: None (occurrence: None)
  Receive Date: 20080519
  Receipt Date: 20080331
  Transmission Date: 20081010
  Serious: Yes (Death, Hospitalization)
  Sender: FDA-Public Use
  Company Number: DE-BAYER-200710687BVD

PATIENT
  Age: 72 Year
  Sex: Male
  Weight: 74 kg

DRUGS (13)
  1. SORAFENIB [Suspect]
     Indication: HEPATIC CANCER METASTATIC
     Route: 048
     Dates: start: 20050214, end: 20070328
  2. SORAFENIB [Suspect]
     Dates: start: 20070328
  3. PANTOPRAZOLE SODIUM [Concomitant]
     Indication: DYSPEPSIA
     Dates: start: 20050101
  4. PRAVASTATIN [Concomitant]
     Indication: HYPERLIPIDAEMIA
     Dates: start: 20050101
  5. FUROSEMIDE [Concomitant]
     Indication: OEDEMA
     Dates: start: 20050101, end: 20070501
  6. METOPROLOL SUCCINATE [Concomitant]
     Indication: CORONARY ARTERY DISEASE
     Dates: start: 20050101, end: 20070501
  7. ASPIRIN [Concomitant]
     Indication: CORONARY ARTERY DISEASE
     Dates: start: 20010101
  8. DIOVAN [Concomitant]
     Indication: HYPERTENSION
  9. ALLOPURINOL [Concomitant]
     Indication: GOUT
     Dates: start: 20040701
  10. TOREM [Concomitant]
     Dates: end: 20070401
  11. SIMVASTATIN [Concomitant]
     Route: 048
     Dates: start: 20060101
  12. FLUVASTATIN [Concomitant]
     Route: 048
     Dates: start: 20070501
  13. TINCTURA OPII [Concomitant]
     Indication: DIARRHOEA
     Route: 048

REACTIONS (5)
  - ACUTE LYMPHOCYTIC LEUKAEMIA [None]
  - DEHYDRATION [None]
  - DIARRHOEA [None]
  - FATIGUE [None]
  - SYNCOPE [None]
